FAERS Safety Report 11315144 (Version 2)
Quarter: 2015Q3

REPORT INFORMATION
  Report Type: Report from Study
  Country: BR (occurrence: BR)
  Receive Date: 20150727
  Receipt Date: 20150811
  Transmission Date: 20151125
  Serious: Yes (Death, Other)
  Sender: FDA-Public Use
  Company Number: PHHY2015BR089107

PATIENT
  Age: 70 Year
  Sex: Male
  Weight: 52 kg

DRUGS (5)
  1. INSULIN [Concomitant]
     Active Substance: INSULIN NOS
     Indication: PRODUCT USED FOR UNKNOWN INDICATION
     Route: 065
  2. OXCARBAZEPINE. [Concomitant]
     Active Substance: OXCARBAZEPINE
     Indication: PRODUCT USED FOR UNKNOWN INDICATION
     Route: 065
  3. EXELON PATCH [Suspect]
     Active Substance: RIVASTIGMINE
     Indication: PRODUCT USED FOR UNKNOWN INDICATION
     Dosage: EXELON 15 CM2 PATCH, QD
     Route: 062
     Dates: start: 201305, end: 201310
  4. CARVEDILOL. [Concomitant]
     Active Substance: CARVEDILOL
     Indication: PRODUCT USED FOR UNKNOWN INDICATION
     Route: 065
  5. ATENOLOL. [Concomitant]
     Active Substance: ATENOLOL
     Indication: PRODUCT USED FOR UNKNOWN INDICATION
     Route: 065

REACTIONS (8)
  - Blood pressure increased [Not Recovered/Not Resolved]
  - Diabetes mellitus [Fatal]
  - Multi-organ failure [Fatal]
  - Respiratory arrest [Not Recovered/Not Resolved]
  - Aspiration bronchial [Recovering/Resolving]
  - Dementia Alzheimer^s type [Unknown]
  - Cerebrovascular accident [Recovering/Resolving]
  - Condition aggravated [None]

NARRATIVE: CASE EVENT DATE: 201405
